FAERS Safety Report 9639991 (Version 2)
Quarter: 2013Q4

REPORT INFORMATION
  Report Type: Spontaneous
  Country: PL (occurrence: PL)
  Receive Date: 20131023
  Receipt Date: 20131025
  Transmission Date: 20140711
  Serious: Yes (Other)
  Sender: FDA-Public Use
  Company Number: PHHY2013PL117537

PATIENT
  Sex: Female

DRUGS (3)
  1. SIGNIFOR [Suspect]
     Indication: PITUITARY TUMOUR
     Dosage: 0.9 UG
     Dates: start: 20130823, end: 20131003
  2. SIGNIFOR [Suspect]
     Indication: OFF LABEL USE
  3. HYDROCORTISONE [Concomitant]

REACTIONS (8)
  - Myocardial ischaemia [Unknown]
  - Heart rate decreased [Unknown]
  - Heart rate irregular [Unknown]
  - Blood pressure decreased [Recovered/Resolved]
  - Urinary tract infection [Recovering/Resolving]
  - Syncope [Recovering/Resolving]
  - Nausea [Recovering/Resolving]
  - Vomiting [Recovering/Resolving]
